FAERS Safety Report 6149535-4 (Version None)
Quarter: 2009Q2

REPORT INFORMATION
  Report Type: 
  Country: None (occurrence: None)
  Receive Date: 20090409
  Receipt Date: 20090408
  Transmission Date: 20091009
  Serious: Yes (Life-Threatening)
  Sender: FDA-Public Use
  Company Number: MX-JNJFOC-20090402226

PATIENT
  Age: 43 Year
  Sex: Female

DRUGS (1)
  1. CONCERTA [Suspect]
     Indication: ATTENTION DEFICIT/HYPERACTIVITY DISORDER
     Route: 048

REACTIONS (1)
  - ARRHYTHMIA [None]
